FAERS Safety Report 18756415 (Version 1)
Quarter: 2021Q1

REPORT INFORMATION
  Report Type: Spontaneous
  Country: DE (occurrence: DE)
  Receive Date: 20210119
  Receipt Date: 20210119
  Transmission Date: 20210419
  Serious: Yes (Death, Congenital Anomaly)
  Sender: FDA-Public Use
  Company Number: DE-PFIZER INC-2021028281

PATIENT

DRUGS (2)
  1. LORAZEPAM. [Suspect]
     Active Substance: LORAZEPAM
     Indication: ANXIETY DISORDER
  2. LORAZEPAM. [Suspect]
     Active Substance: LORAZEPAM
     Indication: PANIC ATTACK
     Dosage: 1 MG
     Route: 064
     Dates: start: 20201001, end: 20201007

REACTIONS (2)
  - Maternal exposure timing unspecified [Fatal]
  - Anencephaly [Fatal]

NARRATIVE: CASE EVENT DATE: 20201125
